FAERS Safety Report 5815938-8 (Version None)
Quarter: 2008Q3

REPORT INFORMATION
  Report Type: 
  Country: None (occurrence: None)
  Receive Date: 20080716
  Receipt Date: 20080716
  Transmission Date: 20090109
  Serious: Yes (Life-Threatening, Hospitalization, Other)
  Sender: FDA-Public Use
  Company Number: None

PATIENT
  Age: 58 Year
  Sex: Male
  Weight: 64.8644 kg

DRUGS (2)
  1. HUMIRA [Suspect]
     Indication: MANTLE CELL LYMPHOMA STAGE IV
     Dosage: EVERY 2 WEEKS
     Dates: start: 20020701, end: 20021201
  2. REMICADE [Suspect]
     Dosage: EVERY 5 WEEKS IV DRIP
     Route: 041
     Dates: start: 20031101, end: 20041201

REACTIONS (2)
  - MANTLE CELL LYMPHOMA [None]
  - STEM CELL TRANSPLANT [None]
